FAERS Safety Report 9270546 (Version 1)
Quarter: 2013Q2

REPORT INFORMATION
  Report Type: Spontaneous
  Country: GB (occurrence: GB)
  Receive Date: 20130503
  Receipt Date: 20130503
  Transmission Date: 20140414
  Serious: Yes (Other)
  Sender: FDA-Public Use
  Company Number: GB-TEVA-400582ISR

PATIENT
  Age: 69 Year
  Sex: Female

DRUGS (2)
  1. METRONIDAZOLE [Suspect]
     Indication: TOOTH ABSCESS
     Route: 048
     Dates: start: 20130404, end: 20130406
  2. MULTIVITAMIN [Concomitant]

REACTIONS (3)
  - Ataxia [Recovering/Resolving]
  - Dizziness [Unknown]
  - Dysstasia [Unknown]
